FAERS Safety Report 9801717 (Version 1)
Quarter: 2014Q1

REPORT INFORMATION
  Report Type: Spontaneous
  Country: FR (occurrence: FR)
  Receive Date: 20140107
  Receipt Date: 20140107
  Transmission Date: 20141002
  Serious: Yes (Hospitalization, Other)
  Sender: FDA-Public Use
  Company Number: FR-ABBVIE-14P-056-1186027-00

PATIENT
  Age: 5 Year
  Sex: Male

DRUGS (7)
  1. ULTANE [Suspect]
     Indication: ANAESTHESIA
     Route: 055
     Dates: start: 20131218, end: 20131218
  2. ALFENTANIL [Suspect]
     Indication: ANAESTHESIA
     Route: 042
     Dates: start: 20131218, end: 20131218
  3. DEXAMETHASONE [Suspect]
     Indication: INDUCTION OF ANAESTHESIA
     Route: 042
     Dates: start: 20131218, end: 20131218
  4. ONDANSETRON [Suspect]
     Indication: PRODUCT USED FOR UNKNOWN INDICATION
     Route: 042
     Dates: start: 20131218, end: 20131218
  5. PARACETAMOL [Concomitant]
     Indication: PRODUCT USED FOR UNKNOWN INDICATION
     Dates: start: 20131218, end: 20131218
  6. ESOMEPRAZOLE [Concomitant]
     Indication: PRODUCT USED FOR UNKNOWN INDICATION
  7. FLUTICASONE [Concomitant]
     Indication: PRODUCT USED FOR UNKNOWN INDICATION

REACTIONS (2)
  - Hepatocellular injury [Not Recovered/Not Resolved]
  - Thrombocytopenia [Recovering/Resolving]
